FAERS Safety Report 19430239 (Version 1)
Quarter: 2021Q2

REPORT INFORMATION
  Report Type: Spontaneous
  Country: US (occurrence: US)
  Receive Date: 20210617
  Receipt Date: 20210617
  Transmission Date: 20210717
  Serious: No
  Sender: FDA-Public Use
  Company Number: US-GLENMARK PHARMACEUTICALS-2021GMK053717

PATIENT

DRUGS (1)
  1. HEATHER [Suspect]
     Active Substance: NORETHINDRONE
     Indication: MENSTRUAL DISORDER
     Dosage: 1 DOSAGE FORM, OD
     Route: 048
     Dates: start: 20210419

REACTIONS (1)
  - Product use in unapproved indication [Unknown]
